APPROVED DRUG PRODUCT: LAMICTAL
Active Ingredient: LAMOTRIGINE
Strength: 200MG
Dosage Form/Route: TABLET;ORAL
Application: N020241 | Product #003 | TE Code: AB
Applicant: GLAXOSMITHKLINE LLC
Approved: Dec 27, 1994 | RLD: Yes | RS: No | Type: RX